FAERS Safety Report 7042091-8 (Version None)
Quarter: 2010Q4

REPORT INFORMATION
  Report Type: 
  Country: None (occurrence: None)
  Receive Date: 20101013
  Receipt Date: 20100205
  Transmission Date: 20110411
  Serious: No
  Sender: FDA-Public Use
  Company Number: US-ASTRAZENECA-2010SE05342

PATIENT
  Age: 65 Year
  Sex: Female
  Weight: 90.7 kg

DRUGS (4)
  1. SYMBICORT [Suspect]
     Indication: ASTHMA
     Dosage: 160 MICROGRAM
     Route: 055
  2. LISINOPRIL [Concomitant]
  3. LEVOTHYROXINE [Concomitant]
  4. LOVOXYL [Concomitant]

REACTIONS (2)
  - DRUG DOSE OMISSION [None]
  - NASAL CONGESTION [None]
